FAERS Safety Report 4855121-6 (Version None)
Quarter: 2005Q4

REPORT INFORMATION
  Report Type: 
  Country: None (occurrence: None)
  Receive Date: 20051125
  Receipt Date: 20041004
  Transmission Date: 20060501
  Serious: Yes (Hospitalization)
  Sender: FDA-Public Use
  Company Number: US-JNJFOC-20040905051

PATIENT
  Age: 86 Year
  Sex: Male
  Weight: 72.5755 kg

DRUGS (11)
  1. LEVAQUIN [Suspect]
     Indication: ASTHMA
     Dosage: 500 MG, 1 IN 1 DAY, ORAL
     Route: 048
     Dates: start: 20040815, end: 20040823
  2. THEOPHYLINE (THEOPHYLLINE) [Concomitant]
  3. CORTICOSTEROIDS [Concomitant]
  4. PROMETHAZINE [Concomitant]
  5. IBUPROFEN [Concomitant]
  6. PRAVACHOL [Concomitant]
  7. ULTRACET [Concomitant]
  8. ASPIRIN [Concomitant]
  9. VITAMINS [Concomitant]
  10. CALCIUM GLUCONATE [Concomitant]
  11. LORCET-HD [Concomitant]

REACTIONS (1)
  - TENDON RUPTURE [None]
